FAERS Safety Report 7257783-5 (Version None)
Quarter: 2011Q1

REPORT INFORMATION
  Report Type: 
  Country: None (occurrence: None)
  Receive Date: 20110129
  Receipt Date: 20100524
  Transmission Date: 20110831
  Serious: No
  Sender: FDA-Public Use
  Company Number: US-ABBOTT-10P-163-0647006-00

PATIENT
  Sex: Female
  Weight: 74.91 kg

DRUGS (2)
  1. HUMIRA [Suspect]
     Indication: PSORIASIS
     Dosage: 2 SHOTS THEN ON 8TH DAY TOOK ANOTHER ONE   2 SHOTS THEN ON 8TH DAY TOOK ANOTHER ONE
     Dates: start: 20100514
  2. CELEBREX [Concomitant]
     Indication: ARTHRITIS

REACTIONS (2)
  - INCORRECT DOSE ADMINISTERED [None]
  - WRONG TECHNIQUE IN DRUG USAGE PROCESS [None]
